FAERS Safety Report 26125873 (Version 1)
Quarter: 2025Q4

REPORT INFORMATION
  Report Type: Spontaneous
  Country: AF (occurrence: AF)
  Receive Date: 20251205
  Receipt Date: 20251205
  Transmission Date: 20260117
  Serious: Yes (Death, Hospitalization)
  Sender: JOHNSON AND JOHNSON
  Company Number: AF-JNJFOC-20251204286

PATIENT
  Age: 80 Year
  Sex: Male
  Weight: 51 kg

DRUGS (4)
  1. BEDAQUILINE [Suspect]
     Active Substance: BEDAQUILINE
     Indication: Tuberculosis
     Route: 048
     Dates: start: 20251130, end: 20251201
  2. ACETAMINOPHEN\CAFFEINE\PROMETHAZINE\SALICYLAMIDE [Suspect]
     Active Substance: ACETAMINOPHEN\CAFFEINE\PROMETHAZINE\SALICYLAMIDE
     Indication: Tuberculosis
     Route: 048
     Dates: start: 20251130, end: 20251201
  3. LINEZOLID [Suspect]
     Active Substance: LINEZOLID
     Indication: Tuberculosis
     Route: 048
     Dates: start: 20251130, end: 20251201
  4. MOXIFLOXACIN [Suspect]
     Active Substance: MOXIFLOXACIN
     Indication: Tuberculosis
     Route: 048
     Dates: start: 20251130, end: 20251201

REACTIONS (1)
  - Haemoptysis [Fatal]
